FAERS Safety Report 25821490 (Version 2)
Quarter: 2025Q3

REPORT INFORMATION
  Report Type: Spontaneous
  Country: US (occurrence: US)
  Receive Date: 20250919
  Receipt Date: 20250926
  Transmission Date: 20251021
  Serious: No
  Sender: ABBVIE
  Company Number: US-ABBVIE-6464555

PATIENT
  Age: 62 Year
  Sex: Male
  Weight: 68.038 kg

DRUGS (5)
  1. VYALEV [Suspect]
     Active Substance: FOSCARBIDOPA\FOSLEVODOPA
     Indication: Parkinson^s disease
     Route: 058
     Dates: start: 2025, end: 20250830
  2. MESALAMINE [Concomitant]
     Active Substance: MESALAMINE
     Indication: Colitis
  3. CARBIDOPA\LEVODOPA [Concomitant]
     Active Substance: CARBIDOPA\LEVODOPA
     Indication: Parkinson^s disease
  4. LINZESS [Concomitant]
     Active Substance: LINACLOTIDE
     Indication: Constipation
  5. ROPINIROLE [Concomitant]
     Active Substance: ROPINIROLE
     Indication: Restless legs syndrome

REACTIONS (4)
  - Catheter site rash [Recovering/Resolving]
  - Catheter site infection [Recovering/Resolving]
  - Catheter site pain [Recovering/Resolving]
  - Catheter site erythema [Recovering/Resolving]

NARRATIVE: CASE EVENT DATE: 20250815
